FAERS Safety Report 6975932-0 (Version None)
Quarter: 2010Q3

REPORT INFORMATION
  Report Type: 
  Country: None (occurrence: None)
  Receive Date: 20100910
  Receipt Date: 20100908
  Transmission Date: 20110219
  Serious: Yes (Life-Threatening, Other)
  Sender: FDA-Public Use
  Company Number: FR-SANOFI-AVENTIS-2010SA053800

PATIENT
  Age: 77 Year
  Sex: Male

DRUGS (8)
  1. PIRILENE [Suspect]
     Route: 048
     Dates: start: 20100604, end: 20100806
  2. RIFADIN [Suspect]
     Route: 048
     Dates: start: 20100604, end: 20100806
  3. RIMIFON [Suspect]
     Route: 048
     Dates: start: 20100604, end: 20100806
  4. AMIKIN [Suspect]
     Indication: PRODUCT USED FOR UNKNOWN INDICATION
     Route: 042
     Dates: start: 20100731, end: 20100805
  5. AXEPIM [Suspect]
     Indication: PRODUCT USED FOR UNKNOWN INDICATION
     Route: 042
     Dates: start: 20100731, end: 20100806
  6. MYAMBUTOL [Suspect]
     Route: 048
     Dates: start: 20100604, end: 20100806
  7. IMIPENEM AND CILASTATIN SODIUM [Concomitant]
     Indication: PRODUCT USED FOR UNKNOWN INDICATION
     Route: 065
     Dates: start: 20100708, end: 20100725
  8. GENTAMICIN [Concomitant]
     Indication: PRODUCT USED FOR UNKNOWN INDICATION
     Route: 065
     Dates: start: 20100719, end: 20100720

REACTIONS (2)
  - DERMATITIS BULLOUS [None]
  - GRAND MAL CONVULSION [None]
